FAERS Safety Report 9281358 (Version 1)
Quarter: 2013Q2

REPORT INFORMATION
  Report Type: Spontaneous
  Country: GB (occurrence: GB)
  Receive Date: 20130509
  Receipt Date: 20130509
  Transmission Date: 20140414
  Serious: Yes (Other)
  Sender: FDA-Public Use
  Company Number: GB-TEVA-403477ISR

PATIENT
  Age: 51 Year
  Sex: Male
  Weight: 73 kg

DRUGS (2)
  1. CO-AMOXICLAV [Suspect]
     Dates: start: 20130415
  2. AMOXICILLIN [Concomitant]
     Dates: start: 20130312, end: 20130319

REACTIONS (5)
  - Drug-induced liver injury [Recovering/Resolving]
  - Haemorrhage [Recovering/Resolving]
  - Mouth ulceration [Recovering/Resolving]
  - Abdominal pain upper [Recovering/Resolving]
  - Chromaturia [Recovered/Resolved]
